FAERS Safety Report 6799989 (Version 5)
Quarter: 2015Q1

REPORT INFORMATION
  Report Type: Report from Study
  Country: DE (occurrence: DE)
  Receive Date: 20081030
  Receipt Date: 20150216
  Transmission Date: 20150721
  Serious: Yes (Hospitalization)
  Sender: FDA-Public Use
  Company Number: DE-NOVOPROD-280610

PATIENT
  Age: 6 Year
  Sex: Male
  Weight: 15.8 kg

DRUGS (1)
  1. NORDITROPIN [Suspect]
     Active Substance: SOMATROPIN
     Indication: GROWTH HORMONE DEFICIENCY
     Dosage: .5 MG, QD
     Route: 058
     Dates: start: 20060125, end: 20081016

REACTIONS (1)
  - Collagen disorder [Recovered/Resolved]

NARRATIVE: CASE EVENT DATE: 20081016
